FAERS Safety Report 20512973 (Version 1)
Quarter: 2022Q1

REPORT INFORMATION
  Report Type: Report from Study
  Country: IT (occurrence: IT)
  Receive Date: 20220224
  Receipt Date: 20220224
  Transmission Date: 20220423
  Serious: Yes (Life-Threatening, Other)
  Sender: FDA-Public Use
  Company Number: IT-Accord-135100

PATIENT
  Age: 70 Year
  Sex: Male

DRUGS (6)
  1. GEMCITABINE [Suspect]
     Active Substance: GEMCITABINE
     Indication: Non-Hodgkin^s lymphoma
  2. OXALIPLATIN [Suspect]
     Active Substance: OXALIPLATIN
     Indication: Non-Hodgkin^s lymphoma
  3. RITUXIMAB [Suspect]
     Active Substance: RITUXIMAB
     Indication: Non-Hodgkin^s lymphoma
  4. ELBASVIR\GRAZOPREVIR [Concomitant]
     Active Substance: ELBASVIR\GRAZOPREVIR
     Indication: Hepatitis C
  5. SOFOSBUVIR [Concomitant]
     Active Substance: SOFOSBUVIR
     Indication: Hepatitis C
  6. DACLATASVIR [Concomitant]
     Active Substance: DACLATASVIR

REACTIONS (2)
  - Off label use [Unknown]
  - Hepatotoxicity [Recovered/Resolved]
